FAERS Safety Report 21498814 (Version 3)
Quarter: 2022Q4

REPORT INFORMATION
  Report Type: Spontaneous
  Country: US (occurrence: US)
  Receive Date: 20221024
  Receipt Date: 20221116
  Transmission Date: 20230113
  Serious: No
  Sender: FDA-Public Use
  Company Number: US-BAYER-2022A142901

PATIENT
  Age: 34 Year
  Sex: Female

DRUGS (1)
  1. MIRENA [Suspect]
     Active Substance: LEVONORGESTREL
     Dosage: 20?G/DAY
     Route: 015
     Dates: start: 20220802, end: 20220915

REACTIONS (4)
  - Erythema nodosum [None]
  - Rash [None]
  - Inflammation [None]
  - Erythema [None]

NARRATIVE: CASE EVENT DATE: 20220802
